FAERS Safety Report 7910119-6 (Version None)
Quarter: 2011Q4

REPORT INFORMATION
  Report Type: 
  Country: None (occurrence: None)
  Receive Date: 20111111
  Receipt Date: 20111026
  Transmission Date: 20120403
  Serious: Yes (Other)
  Sender: FDA-Public Use
  Company Number: CA-ROCHE-GNE273069

PATIENT
  Sex: Female
  Weight: 88.4 kg

DRUGS (3)
  1. OMALIZUMAB [Suspect]
     Route: 058
     Dates: start: 20091201
  2. OMALIZUMAB [Suspect]
     Indication: ASTHMA
     Route: 058
     Dates: start: 20070214
  3. OMALIZUMAB [Suspect]
     Route: 058
     Dates: start: 20091027

REACTIONS (7)
  - PAIN [None]
  - ADVERSE REACTION [None]
  - HEART RATE INCREASED [None]
  - PULMONARY CONGESTION [None]
  - SWELLING [None]
  - COUGH [None]
  - ANXIETY [None]
